FAERS Safety Report 8583858-4 (Version None)
Quarter: 2012Q3

REPORT INFORMATION
  Report Type: 
  Country: None (occurrence: None)
  Receive Date: 20120810
  Receipt Date: 20120731
  Transmission Date: 20120928
  Serious: Yes (Hospitalization, Other)
  Sender: FDA-Public Use
  Company Number: US-009507513-1203USA00788

PATIENT

DRUGS (3)
  1. FOSAMAX [Suspect]
     Dosage: 70 MG, UNK
     Route: 048
     Dates: start: 20080808, end: 20110901
  2. FOSAMAX [Suspect]
     Dosage: 70 MG, UNK
     Route: 048
     Dates: start: 20080801, end: 20110901
  3. FOSAMAX [Suspect]
     Indication: OSTEOPOROSIS
     Dosage: 70 MG, QW
     Route: 048
     Dates: start: 19990101, end: 20080701

REACTIONS (48)
  - NERVE INJURY [None]
  - SINUSITIS [None]
  - GALLBLADDER DISORDER [None]
  - ARTHRITIS [None]
  - MITRAL VALVE INCOMPETENCE [None]
  - LIPOMA [None]
  - GASTROOESOPHAGEAL REFLUX DISEASE [None]
  - PAIN IN EXTREMITY [None]
  - TENDONITIS [None]
  - BUNDLE BRANCH BLOCK LEFT [None]
  - BLOOD CHOLESTEROL INCREASED [None]
  - OEDEMA [None]
  - DIARRHOEA INFECTIOUS [None]
  - DEPRESSION [None]
  - CALCIUM DEFICIENCY [None]
  - MASS [None]
  - THYROID DISORDER [None]
  - DIZZINESS [None]
  - ESSENTIAL HYPERTENSION [None]
  - ANXIETY DISORDER [None]
  - FALL [None]
  - HYPERLIPIDAEMIA [None]
  - BLOOD DISORDER [None]
  - CHEST PAIN [None]
  - EMOTIONAL DISTRESS [None]
  - CARDIAC FAILURE CONGESTIVE [None]
  - OBESITY [None]
  - LARYNGEAL OEDEMA [None]
  - PARANASAL CYST [None]
  - LACERATION [None]
  - DEEP VEIN THROMBOSIS [None]
  - IRRITABLE BOWEL SYNDROME [None]
  - FEMUR FRACTURE [None]
  - LOW TURNOVER OSTEOPATHY [None]
  - CHRONIC LYMPHOCYTIC LEUKAEMIA [None]
  - DIABETES MELLITUS [None]
  - EAR DISCOMFORT [None]
  - DYSPHONIA [None]
  - VOCAL CORD THICKENING [None]
  - LEFT ATRIAL DILATATION [None]
  - CEREBROVASCULAR ACCIDENT [None]
  - ACUTE SINUSITIS [None]
  - URINARY TRACT INFECTION [None]
  - CARDIAC DISORDER [None]
  - COUGH [None]
  - LIGAMENT SPRAIN [None]
  - VENTRICULAR DYSFUNCTION [None]
  - DIABETIC NEUROPATHY [None]
